FAERS Safety Report 20830776 (Version 1)
Quarter: 2022Q2

REPORT INFORMATION
  Report Type: Report from Study
  Country: US (occurrence: US)
  Receive Date: 20220515
  Receipt Date: 20220515
  Transmission Date: 20220721
  Serious: Yes (Other)
  Sender: FDA-Public Use
  Company Number: US-BRISTOL-MYERS SQUIBB COMPANY-2022-035904

PATIENT
  Age: 62 Year
  Sex: Female

DRUGS (7)
  1. ELIQUIS [Suspect]
     Active Substance: APIXABAN
     Indication: Deep vein thrombosis
     Route: 065
     Dates: start: 202204, end: 202204
  2. HUMIRA [Suspect]
     Active Substance: ADALIMUMAB
     Indication: Psoriatic arthropathy
     Dosage: 1 IN 2 WK
     Route: 058
     Dates: start: 20220302, end: 2022
  3. PFIZER-BIONTECH COVID-19 VACCINE [Concomitant]
     Active Substance: TOZINAMERAN
     Indication: COVID-19 immunisation
     Route: 030
     Dates: start: 20210326, end: 20210326
  4. PFIZER-BIONTECH COVID-19 VACCINE [Concomitant]
     Active Substance: TOZINAMERAN
     Route: 030
     Dates: start: 20210416, end: 20210416
  5. PFIZER-BIONTECH COVID-19 VACCINE [Concomitant]
     Active Substance: TOZINAMERAN
     Route: 030
     Dates: start: 20211029, end: 20211029
  6. PFIZER BIONTECH COVID-19 [Concomitant]
  7. PFIZER BIONTECH COVID-19 [Concomitant]

REACTIONS (2)
  - Deep vein thrombosis [Recovering/Resolving]
  - Drug hypersensitivity [Unknown]

NARRATIVE: CASE EVENT DATE: 20220401
